FAERS Safety Report 10080552 (Version 3)
Quarter: 2014Q2

REPORT INFORMATION
  Report Type: Report from Study
  Country: KR (occurrence: KR)
  Receive Date: 20140416
  Receipt Date: 20140516
  Transmission Date: 20141212
  Serious: Yes (Death)
  Sender: FDA-Public Use
  Company Number: KR-BAYER-2013-130087

PATIENT
  Age: 57 Year
  Sex: Male
  Weight: 60.9 kg

DRUGS (3)
  1. REGORAFENIB [Suspect]
     Indication: GASTROINTESTINAL STROMAL TUMOUR
     Dosage: 160 MG, QD
     Dates: start: 20130319
  2. REGORAFENIB [Suspect]
     Indication: GASTROINTESTINAL STROMAL TUMOUR
     Dosage: 160 MG
     Dates: start: 20131015, end: 20131023
  3. REGORAFENIB [Suspect]
     Indication: GASTROINTESTINAL STROMAL TUMOUR
     Dosage: 160 MG, QD
     Dates: start: 20140218, end: 20140310

REACTIONS (2)
  - Wound infection [Fatal]
  - Gastrointestinal haemorrhage [Fatal]
